FAERS Safety Report 12919932 (Version 1)
Quarter: 2016Q4

REPORT INFORMATION
  Report Type: Spontaneous
  Country: IT (occurrence: IT)
  Receive Date: 20161108
  Receipt Date: 20161108
  Transmission Date: 20170207
  Serious: Yes (Other)
  Sender: FDA-Public Use
  Company Number: IT-JNJFOC-20161104774

PATIENT
  Age: 54 Year
  Sex: Female

DRUGS (2)
  1. IMODIUM [Suspect]
     Active Substance: LOPERAMIDE HYDROCHLORIDE
     Indication: INTENTIONAL SELF-INJURY
     Route: 048
     Dates: start: 20161103, end: 20161103
  2. IMODIUM [Suspect]
     Active Substance: LOPERAMIDE HYDROCHLORIDE
     Route: 048

REACTIONS (4)
  - Dizziness [Unknown]
  - Overdose [Unknown]
  - Intentional self-injury [Unknown]
  - Sluggishness [Unknown]

NARRATIVE: CASE EVENT DATE: 20161103
